FAERS Safety Report 25650489 (Version 1)
Quarter: 2025Q3

REPORT INFORMATION
  Report Type: Spontaneous
  Country: US (occurrence: None)
  Receive Date: 20250806
  Receipt Date: 20250806
  Transmission Date: 20251020
  Serious: Yes (Other)
  Sender: FDA-CTU
  Company Number: None

PATIENT
  Age: 74 Year
  Sex: Female
  Weight: 76.5 kg

DRUGS (10)
  1. PRIMIDONE [Suspect]
     Active Substance: PRIMIDONE
     Indication: Essential tremor
     Dosage: OTHER QUANTITY : 1 TABLET(S);?FREQUENCY : AT BEDTIME;?
     Route: 048
     Dates: start: 20250717
  2. PRIMIDONE [Concomitant]
     Active Substance: PRIMIDONE
  3. SERTRALINE [Concomitant]
     Active Substance: SERTRALINE HYDROCHLORIDE
  4. meloxicam on occasion [Concomitant]
  5. daily adult multi-vitamin [Concomitant]
  6. extra vitamin D [Concomitant]
  7. MAGNESIUM [Concomitant]
     Active Substance: MAGNESIUM
  8. MELATONIN [Concomitant]
     Active Substance: MELATONIN
  9. NAPROXEN SODIUM [Concomitant]
     Active Substance: NAPROXEN SODIUM
  10. HERBALS\TURMERIC [Concomitant]
     Active Substance: HERBALS\TURMERIC

REACTIONS (5)
  - Erythema [None]
  - Burning sensation [None]
  - Intentional product use issue [None]
  - Paraesthesia [None]
  - Feeling hot [None]

NARRATIVE: CASE EVENT DATE: 20250803
